FAERS Safety Report 5383966-5 (Version None)
Quarter: 2007Q3

REPORT INFORMATION
  Report Type: 
  Country: None (occurrence: None)
  Receive Date: 20070711
  Receipt Date: 20070704
  Transmission Date: 20080115
  Serious: Yes (Life-Threatening, Hospitalization, Other)
  Sender: FDA-Public Use
  Company Number: CHWYE974105JUL07

PATIENT
  Sex: Male

DRUGS (1)
  1. EFFEXOR [Suspect]
     Route: 048

REACTIONS (3)
  - APGAR SCORE ABNORMAL [None]
  - FOETAL HEART RATE ABNORMAL [None]
  - SMALL FOR DATES BABY [None]
